FAERS Safety Report 24288247 (Version 3)
Quarter: 2025Q2

REPORT INFORMATION
  Report Type: Report from Study
  Country: CO (occurrence: CO)
  Receive Date: 20240905
  Receipt Date: 20250506
  Transmission Date: 20250717
  Serious: Yes (Death, Life-Threatening, Hospitalization)
  Sender: ABBVIE
  Company Number: CO-ABBVIE-5906919

PATIENT
  Age: 57 Year
  Sex: Male

DRUGS (1)
  1. VENCLEXTA [Suspect]
     Active Substance: VENETOCLAX
     Indication: Chronic lymphocytic leukaemia
     Route: 048
     Dates: start: 20240717, end: 20240826

REACTIONS (9)
  - Death [Fatal]
  - Chills [Not Recovered/Not Resolved]
  - Pyrexia [Not Recovered/Not Resolved]
  - Fluid retention [Unknown]
  - Hypotension [Unknown]
  - Renal disorder [Unknown]
  - Fungal infection [Unknown]
  - Renal impairment [Unknown]
  - Infection [Unknown]

NARRATIVE: CASE EVENT DATE: 20240801
